FAERS Safety Report 5801404-2 (Version None)
Quarter: 2008Q3

REPORT INFORMATION
  Report Type: 
  Country: None (occurrence: None)
  Receive Date: 20080702
  Receipt Date: 20080625
  Transmission Date: 20090109
  Serious: Yes (Death)
  Sender: FDA-Public Use
  Company Number: 14505

PATIENT
  Age: 28 Year
  Sex: Male

DRUGS (6)
  1. MORPHINE SULFATE [Suspect]
     Dosage: ORALLY
     Route: 048
     Dates: start: 20080501
  2. ATIVAN [Concomitant]
  3. KLONOPIN [Concomitant]
  4. TEMAZEPAM [Concomitant]
  5. DEPAKOTE [Concomitant]
  6. UNSPECIFIED CARDIAC MEDICATIONS [Concomitant]

REACTIONS (2)
  - DEATH [None]
  - PHARMACEUTICAL PRODUCT COMPLAINT [None]
